FAERS Safety Report 24219997 (Version 1)
Quarter: 2024Q3

REPORT INFORMATION
  Report Type: Spontaneous
  Country: CA (occurrence: CA)
  Receive Date: 20240817
  Receipt Date: 20240817
  Transmission Date: 20241017
  Serious: Yes (Death, Life-Threatening, Hospitalization, Other)
  Sender: CELLTRION
  Company Number: CA-CELLTRION INC.-2021CA019571

PATIENT

DRUGS (23)
  1. TRUXIMA [Suspect]
     Active Substance: RITUXIMAB-ABBS
     Indication: Rheumatoid arthritis
     Dosage: 1000 MG, DAY1 AND 15
     Route: 042
     Dates: start: 20210525
  2. TRUXIMA [Suspect]
     Active Substance: RITUXIMAB-ABBS
     Dosage: 1000 MG, FREQUENCY: INFUSION 2
     Route: 042
     Dates: start: 20210525
  3. TRUXIMA [Suspect]
     Active Substance: RITUXIMAB-ABBS
     Dosage: 1000 MG, FREQUENCY: INFUSION 3
     Route: 042
     Dates: start: 20210525
  4. TRUXIMA [Suspect]
     Active Substance: RITUXIMAB-ABBS
     Dosage: 1000 MG (INFUSION#5; STARTED AT 25 ML/HR)
     Route: 042
     Dates: start: 20210525
  5. TRUXIMA [Suspect]
     Active Substance: RITUXIMAB-ABBS
     Dosage: 2 DOSES 2 WEEKS APART
     Dates: start: 20210510
  6. TRUXIMA [Suspect]
     Active Substance: RITUXIMAB-ABBS
     Dosage: 1000 MILLIGRAM, INFUSION #6
     Route: 042
     Dates: start: 20210525
  7. TRUXIMA [Suspect]
     Active Substance: RITUXIMAB-ABBS
     Dosage: 1000 MILLIGRAM, Q2WEEKS  (TWO SETS ONCE EVERY 2 WEEKS)
     Route: 042
     Dates: start: 20210525
  8. TRUXIMA [Suspect]
     Active Substance: RITUXIMAB-ABBS
     Dosage: 1000 MILLIGRAM, Q2WEEKS (TWO SETS ONCE EVERY 2 WEEKS) (STRAT DATE: APR OR MAY 2022)
     Route: 042
     Dates: start: 2022
  9. TRUXIMA [Suspect]
     Active Substance: RITUXIMAB-ABBS
     Dosage: 1000 MILLIGRAM
     Route: 042
     Dates: start: 20210525
  10. TRUXIMA [Suspect]
     Active Substance: RITUXIMAB-ABBS
     Dosage: 1000 MILLIGRAM
     Route: 042
  11. TRUXIMA [Suspect]
     Active Substance: RITUXIMAB-ABBS
     Dosage: 1000 MG, INFUSION#8
     Route: 042
     Dates: start: 20210525
  12. TRUXIMA [Suspect]
     Active Substance: RITUXIMAB-ABBS
     Dosage: 1000 MG, INFUSION#9
     Route: 042
     Dates: start: 20210525
  13. TRUXIMA [Suspect]
     Active Substance: RITUXIMAB-ABBS
     Dosage: 1000 MG, DAY1 AND DAY15
     Route: 042
     Dates: start: 20210525, end: 2024
  14. PENICILLIN G [Concomitant]
     Active Substance: PENICILLIN G
     Dosage: UNK
  15. SULFASALAZINE [Concomitant]
     Active Substance: SULFASALAZINE
  16. HYDROXYCHLOROQUINE [Concomitant]
     Active Substance: HYDROXYCHLOROQUINE
  17. PREDNISONE [Concomitant]
     Active Substance: PREDNISONE
     Route: 048
  18. FLUTAMIDE [Concomitant]
     Active Substance: FLUTAMIDE
  19. LEFLUNOMIDE [Concomitant]
     Active Substance: LEFLUNOMIDE
  20. APIXABAN [Concomitant]
     Active Substance: APIXABAN
  21. AMLODIPINE BESYLATE [Concomitant]
     Active Substance: AMLODIPINE BESYLATE
  22. BENADRYL [Concomitant]
     Active Substance: DIPHENHYDRAMINE HYDROCHLORIDE
  23. TYLENOL [Concomitant]
     Active Substance: ACETAMINOPHEN

REACTIONS (16)
  - Death [Fatal]
  - Lung disorder [Unknown]
  - Arthropathy [Unknown]
  - Interstitial lung disease [Unknown]
  - Blood pressure increased [Unknown]
  - Sepsis [Recovered/Resolved]
  - COVID-19 [Not Recovered/Not Resolved]
  - Pneumonia [Recovered/Resolved]
  - Insomnia [Recovered/Resolved]
  - Poor venous access [Unknown]
  - Malaise [Unknown]
  - Condition aggravated [Unknown]
  - Infusion site oedema [Unknown]
  - Refusal of treatment by patient [Unknown]
  - Intentional dose omission [Unknown]
  - Off label use [Unknown]

NARRATIVE: CASE EVENT DATE: 20220510
